FAERS Safety Report 15136045 (Version 1)
Quarter: 2018Q3

REPORT INFORMATION
  Report Type: Spontaneous
  Country: US (occurrence: US)
  Receive Date: 20180712
  Receipt Date: 20180712
  Transmission Date: 20181010
  Serious: No
  Sender: FDA-Public Use
  Company Number: US-PFIZER INC-2018279889

PATIENT
  Age: 5 Year
  Sex: Male

DRUGS (1)
  1. EUCRISA [Suspect]
     Active Substance: CRISABOROLE
     Dosage: APPLY ONE THIN APPLICATION TO AFFECTED AREAS TWICE DAILY
     Dates: start: 201807, end: 201807

REACTIONS (5)
  - Application site swelling [Unknown]
  - Application site erythema [Unknown]
  - Application site discolouration [Unknown]
  - Application site pruritus [Unknown]
  - Application site erosion [Unknown]
